FAERS Safety Report 13245023 (Version 2)
Quarter: 2017Q1

REPORT INFORMATION
  Report Type: Spontaneous
  Country: US (occurrence: US)
  Receive Date: 20170217
  Receipt Date: 20170322
  Transmission Date: 20170428
  Serious: No
  Sender: FDA-Public Use
  Company Number: US-GLAXOSMITHKLINE-US2017022514

PATIENT
  Sex: Female

DRUGS (2)
  1. VENTOLIN HFA [Suspect]
     Active Substance: ALBUTEROL SULFATE
     Indication: CHRONIC OBSTRUCTIVE PULMONARY DISEASE
     Dosage: 2 PUFF(S), PRN
     Route: 055
     Dates: start: 2015
  2. VENTOLIN HFA [Suspect]
     Active Substance: ALBUTEROL SULFATE
     Indication: DYSPNOEA

REACTIONS (8)
  - Drug ineffective [Unknown]
  - Headache [Unknown]
  - Intentional device misuse [Unknown]
  - Rhinorrhoea [Unknown]
  - Product cleaning inadequate [Unknown]
  - Agitation [Unknown]
  - Product quality issue [Unknown]
  - Device use error [Unknown]
